FAERS Safety Report 9945719 (Version 1)
Quarter: 2014Q1

REPORT INFORMATION
  Report Type: Spontaneous
  Country: US (occurrence: US)
  Receive Date: 20140303
  Receipt Date: 20140303
  Transmission Date: 20141002
  Serious: No
  Sender: FDA-Public Use
  Company Number: US-AMGEN-USASP2013070583

PATIENT
  Age: 72 Year
  Sex: Female
  Weight: 54.42 kg

DRUGS (8)
  1. ENBREL [Suspect]
     Indication: PRODUCT USED FOR UNKNOWN INDICATION
     Dosage: 50 MG, QWK
     Route: 058
  2. PANAX GINSENG [Concomitant]
     Dosage: 100 MG, UNK
  3. PREDNISONE [Concomitant]
     Dosage: 1 MG, UNK
  4. NASONEX [Concomitant]
     Dosage: 50 MCG/AC
  5. LICORICE                           /01125801/ [Concomitant]
     Dosage: 450 MG, UNK
  6. TRAMADOL HCL [Concomitant]
     Dosage: 50 MG, UNK
  7. ALEVE [Concomitant]
     Dosage: 220 MG, UNK
  8. ARNICA                             /01006901/ [Concomitant]
     Dosage: UNK

REACTIONS (3)
  - Pyrexia [Unknown]
  - Dysphonia [Unknown]
  - Nasopharyngitis [Unknown]
